FAERS Safety Report 8433619-1 (Version None)
Quarter: 2012Q2

REPORT INFORMATION
  Report Type: 
  Country: None (occurrence: None)
  Receive Date: 20120613
  Receipt Date: 20120531
  Transmission Date: 20120825
  Serious: No
  Sender: FDA-Public Use
  Company Number: US-ASTRAZENECA-2012SE36429

PATIENT
  Age: 67 Year
  Sex: Female

DRUGS (6)
  1. ATENOLOL [Concomitant]
     Route: 048
  2. AMLODIPINE BESYLATE [Concomitant]
     Route: 048
  3. SYNTHROID [Concomitant]
     Route: 048
  4. VYTORIN [Concomitant]
     Dosage: 10-20 MG, DAILY
     Route: 048
  5. RAMIPRIL [Concomitant]
     Route: 048
  6. CAPRELSA [Suspect]
     Indication: THYROID CANCER
     Route: 048

REACTIONS (4)
  - MUSCLE SPASMS [None]
  - BLOOD PRESSURE INCREASED [None]
  - PRURITUS [None]
  - ELECTROCARDIOGRAM QT PROLONGED [None]
